FAERS Safety Report 17508336 (Version 2)
Quarter: 2020Q3

REPORT INFORMATION
  Report Type: Spontaneous
  Country: JP (occurrence: JP)
  Receive Date: 20200306
  Receipt Date: 20200922
  Transmission Date: 20201102
  Serious: Yes (Hospitalization, Other)
  Sender: FDA-Public Use
  Company Number: JP-BRISTOL-MYERS SQUIBB COMPANY-BMS-2020-014486

PATIENT
  Age: 65 Year
  Sex: Male

DRUGS (1)
  1. OPDIVO [Suspect]
     Active Substance: NIVOLUMAB
     Indication: HEAD AND NECK CANCER METASTATIC
     Dosage: 150 MG (3 MG/KG), Q2W), 7 COURSES
     Route: 041
     Dates: start: 20180725, end: 20181017

REACTIONS (1)
  - Chondritis [Recovering/Resolving]

NARRATIVE: CASE EVENT DATE: 20181031
